FAERS Safety Report 21007806 (Version 1)
Quarter: 2022Q2

REPORT INFORMATION
  Report Type: Spontaneous
  Country: US (occurrence: US)
  Receive Date: 20220627
  Receipt Date: 20220627
  Transmission Date: 20220721
  Serious: No
  Sender: FDA-Public Use
  Company Number: US-UROGEN PHARMA LTD.-2022-UGN-000047

PATIENT

DRUGS (7)
  1. JELMYTO [Suspect]
     Active Substance: MITOMYCIN
     Indication: Transitional cell cancer of the renal pelvis and ureter
     Dosage: 1 MG UNK (INSTILLATION)
     Dates: start: 202106, end: 202106
  2. JELMYTO [Suspect]
     Active Substance: MITOMYCIN
     Dosage: 1 MG UNK (INSTILLATION)
     Dates: start: 2021, end: 2021
  3. JELMYTO [Suspect]
     Active Substance: MITOMYCIN
     Dosage: 1 MG UNK (INSTILLATION)
     Dates: start: 2021, end: 2021
  4. JELMYTO [Suspect]
     Active Substance: MITOMYCIN
     Dosage: 1 MG UNK (INSTILLATION)
     Dates: start: 2021, end: 2021
  5. JELMYTO [Suspect]
     Active Substance: MITOMYCIN
     Dosage: 1 MG UNK (INSTILLATION)
     Dates: start: 2021, end: 2021
  6. JELMYTO [Suspect]
     Active Substance: MITOMYCIN
     Dosage: 1 MG UNK (INSTILLATION)
     Dates: start: 202107, end: 202107
  7. JELMYTO [Suspect]
     Active Substance: MITOMYCIN
     Dosage: 1 MG UNK (INSTILLATION)
     Dates: start: 20211012, end: 20211012

REACTIONS (1)
  - Illness [Unknown]
